FAERS Safety Report 7103446-6 (Version None)
Quarter: 2010Q4

REPORT INFORMATION
  Report Type: 
  Country: None (occurrence: None)
  Receive Date: 20101115
  Receipt Date: 20101108
  Transmission Date: 20110411
  Serious: Yes (Hospitalization, Disabling, Other)
  Sender: FDA-Public Use
  Company Number: US-CELGENEUS-163-21880-10080427

PATIENT
  Sex: Male

DRUGS (7)
  1. REVLIMID [Suspect]
     Indication: MYELODYSPLASTIC SYNDROME
     Route: 048
     Dates: start: 20100714, end: 20100806
  2. REVLIMID [Suspect]
     Route: 048
     Dates: start: 20100830
  3. DEXAMETHASONE [Concomitant]
     Route: 065
  4. SYNTHROID [Concomitant]
     Route: 065
  5. PREDNISONE [Concomitant]
     Route: 065
  6. ATENOLOL [Concomitant]
     Route: 065
  7. HYDROCODONE [Concomitant]
     Route: 065

REACTIONS (3)
  - JAUNDICE [None]
  - PANCYTOPENIA [None]
  - SOMNOLENCE [None]
